FAERS Safety Report 15627079 (Version 1)
Quarter: 2018Q4

REPORT INFORMATION
  Report Type: Spontaneous
  Country: US (occurrence: US)
  Receive Date: 20181112
  Receipt Date: 20181112
  Transmission Date: 20190205
  Serious: No
  Sender: FDA-Public Use
  Company Number: None

PATIENT
  Age: 20 Year

DRUGS (1)
  1. MYCOPHENOLATE MOFETIL 500MG  TABLET [Suspect]
     Active Substance: MYCOPHENOLATE MOFETIL
     Dates: start: 20171101

REACTIONS (2)
  - Back pain [None]
  - Alopecia [None]

NARRATIVE: CASE EVENT DATE: 20181110
